FAERS Safety Report 4284912-8 (Version None)
Quarter: 2004Q1

REPORT INFORMATION
  Report Type: 
  Country: None (occurrence: None)
  Receive Date: 20040121
  Receipt Date: 20021125
  Transmission Date: 20041129
  Serious: Yes (Hospitalization)
  Sender: FDA-Public Use
  Company Number: A03200201426

PATIENT
  Age: 78 Year
  Sex: Male
  Weight: 90.7194 kg

DRUGS (6)
  1. PLAVIX [Suspect]
     Indication: CEREBROVASCULAR ACCIDENT
     Dosage: 75 MG QD - ORAL
     Route: 048
     Dates: start: 20000101, end: 20021110
  2. PLAVIX [Suspect]
     Indication: CEREBROVASCULAR ACCIDENT
     Dosage: 75 MG QD - ORAL
     Route: 048
     Dates: start: 20021120
  3. CELECOXIB [Concomitant]
  4. CARVEDILOL [Concomitant]
  5. SIMVASTATIN [Concomitant]
  6. CANDESARTAN CILEXETIL [Concomitant]

REACTIONS (1)
  - CEREBROVASCULAR ACCIDENT [None]
